FAERS Safety Report 16775075 (Version 1)
Quarter: 2019Q3

REPORT INFORMATION
  Report Type: Spontaneous
  Country: US (occurrence: UM)
  Receive Date: 20190905
  Receipt Date: 20190905
  Transmission Date: 20191005
  Serious: Yes (Death, Life-Threatening, Hospitalization, Other)
  Sender: FDA-Public Use
  Company Number: US-DRREDDYS-USA/USA/19/0113923

PATIENT
  Age: 32 Year
  Sex: Male

DRUGS (2)
  1. METOPROLOL SUCCINATE. [Suspect]
     Active Substance: METOPROLOL SUCCINATE
     Indication: PRODUCT USED FOR UNKNOWN INDICATION
     Dosage: UNKNOWN AMOUNT
     Route: 048
  2. FLECAINIDE [Suspect]
     Active Substance: FLECAINIDE
     Indication: PRODUCT USED FOR UNKNOWN INDICATION
     Dosage: 30 TABLETS
     Route: 048

REACTIONS (9)
  - Suicide attempt [Fatal]
  - Shock [Fatal]
  - Cardiac arrest [Fatal]
  - Hypotension [Fatal]
  - Cardiogenic shock [Fatal]
  - Electrocardiogram QRS complex prolonged [Fatal]
  - Ventricular fibrillation [Fatal]
  - Unresponsive to stimuli [Fatal]
  - Intentional overdose [Fatal]
